FAERS Safety Report 7439572-1 (Version None)
Quarter: 2011Q2

REPORT INFORMATION
  Report Type: 
  Country: None (occurrence: None)
  Receive Date: 20110427
  Receipt Date: 20110425
  Transmission Date: 20111010
  Serious: Yes (Death, Hospitalization, Other)
  Sender: FDA-Public Use
  Company Number: VE-PFIZER INC-2011088817

PATIENT
  Age: 75 Year
  Sex: Male

DRUGS (7)
  1. AMARYL [Concomitant]
     Dosage: 4 MG, 1X/DAY
     Route: 048
  2. AVANDIA [Concomitant]
     Dosage: UNK
     Route: 048
  3. CADUET [Suspect]
     Indication: HYPERTENSION
     Dosage: 1X/DAY
     Route: 048
     Dates: start: 20080101, end: 20101020
  4. COAPROVEL [Concomitant]
     Dosage: UNK
     Route: 048
     Dates: start: 20080101
  5. NORVASC [Concomitant]
     Indication: HYPERTENSION
     Dosage: 5 MG, 1X/DAY
     Route: 048
     Dates: start: 20080101
  6. FORADIL MIFLONIDE [Concomitant]
     Dosage: UNK
     Route: 050
  7. GLAFORNIL [Concomitant]
     Dosage: 500 MG, 3X/DAY
     Route: 048

REACTIONS (1)
  - RENAL FAILURE ACUTE [None]
